FAERS Safety Report 9089203 (Version 1)
Quarter: 2013Q1

REPORT INFORMATION
  Report Type: Spontaneous
  Country: US (occurrence: US)
  Receive Date: 20130201
  Receipt Date: 20130201
  Transmission Date: 20140127
  Serious: Yes (Other)
  Sender: FDA-Public Use
  Company Number: US-PERRIGO-13US000773

PATIENT
  Age: 7 Year
  Sex: Female
  Weight: 20.41 kg

DRUGS (1)
  1. CETIRIZINE [Suspect]
     Indication: SEASONAL ALLERGY
     Dosage: 5 MG, SINGLE
     Route: 048
     Dates: start: 20130122, end: 20130122

REACTIONS (3)
  - Hallucination [Recovered/Resolved]
  - Feeling jittery [Recovered/Resolved]
  - Insomnia [Recovered/Resolved]
